FAERS Safety Report 23812705 (Version 1)
Quarter: 2024Q2

REPORT INFORMATION
  Report Type: Spontaneous
  Country: US (occurrence: US)
  Receive Date: 20240503
  Receipt Date: 20240503
  Transmission Date: 20240716
  Serious: No
  Sender: FDA-Public Use
  Company Number: US-APOTEX-2023AP010428

PATIENT
  Age: 14 Year
  Sex: Male

DRUGS (1)
  1. TRAZODONE HYDROCHLORIDE [Interacting]
     Active Substance: TRAZODONE HYDROCHLORIDE
     Indication: Sleep disorder therapy
     Dosage: 75 MILLIGRAM (1.5 TABS)
     Route: 050

REACTIONS (5)
  - Dyspnoea [Recovered/Resolved]
  - Breath sounds abnormal [Recovered/Resolved]
  - Drug interaction [Unknown]
  - Multiple drug therapy [Unknown]
  - Respiratory symptom [Unknown]
